FAERS Safety Report 25900887 (Version 2)
Quarter: 2025Q4

REPORT INFORMATION
  Report Type: Spontaneous
  Country: DO (occurrence: DO)
  Receive Date: 20251009
  Receipt Date: 20251202
  Transmission Date: 20260117
  Serious: No
  Sender: PFIZER
  Company Number: DO-PFIZER INC-PV202500119457

PATIENT
  Age: 5 Year
  Sex: Male

DRUGS (1)
  1. GENOTROPIN [Suspect]
     Active Substance: SOMATROPIN
     Dosage: 0.6 MG, ONCE AT NIGHT

REACTIONS (3)
  - Device leakage [Unknown]
  - Device information output issue [Unknown]
  - Drug dose omission by device [Unknown]
